FAERS Safety Report 25365589 (Version 1)
Quarter: 2025Q2

REPORT INFORMATION
  Report Type: Report from Study
  Country: US (occurrence: US)
  Receive Date: 20250527
  Receipt Date: 20250527
  Transmission Date: 20250717
  Serious: Yes (Other)
  Sender: MALLINCKRODT
  Company Number: US-MALLINCKRODT-MNK202502433

PATIENT
  Sex: Female

DRUGS (1)
  1. CORTICOTROPIN [Suspect]
     Active Substance: CORTICOTROPIN
     Indication: Polymyositis

REACTIONS (15)
  - Syncope [Unknown]
  - Pneumonia bacterial [Recovering/Resolving]
  - Weight gain poor [Unknown]
  - Tremor [Not Recovered/Not Resolved]
  - Anosmia [Not Recovered/Not Resolved]
  - Ageusia [Not Recovered/Not Resolved]
  - Ill-defined disorder [Recovering/Resolving]
  - Dysphonia [Not Recovered/Not Resolved]
  - Adverse event [Unknown]
  - Blood glucose abnormal [Unknown]
  - Fatigue [Unknown]
  - Asthenia [Not Recovered/Not Resolved]
  - Injection site swelling [Unknown]
  - Injection site haemorrhage [Unknown]
  - Injection site pain [Unknown]
